FAERS Safety Report 8905355 (Version 2)
Quarter: 2013Q1

REPORT INFORMATION
  Report Type: Spontaneous
  Country: US (occurrence: US)
  Receive Date: 20121113
  Receipt Date: 20130205
  Transmission Date: 20140127
  Serious: No
  Sender: FDA-Public Use
  Company Number: US-ELI_LILLY_AND_COMPANY-US201209004861

PATIENT
  Sex: Male

DRUGS (7)
  1. HUMATROPE [Suspect]
     Dosage: 0.5 MG, QD
     Route: 058
     Dates: start: 20120713
  2. LEVOTHYROXIN [Concomitant]
     Dosage: 150 MG, UNK
  3. PHENTERMINE [Concomitant]
     Dosage: 37.5 MG, QD
  4. TESTOSTERONE [Concomitant]
     Dosage: 200 MG, OTHER
     Route: 030
  5. PRILOSEC [Concomitant]
     Dosage: 20 MG, UNK
  6. ZOLPIDEM [Concomitant]
     Dosage: 10 MG, UNK
  7. OXYCODONE [Concomitant]

REACTIONS (2)
  - Seborrhoea [Not Recovered/Not Resolved]
  - Drug ineffective [Recovered/Resolved]
